FAERS Safety Report 11111748 (Version 1)
Quarter: 2015Q2

REPORT INFORMATION
  Report Type: Spontaneous
  Country: US (occurrence: US)
  Receive Date: 20150514
  Receipt Date: 20150514
  Transmission Date: 20150821
  Serious: No
  Sender: FDA-Public Use
  Company Number: US-009507513-1505USA003071

PATIENT
  Age: 32 Year
  Sex: Female

DRUGS (3)
  1. NEXPLANON [Suspect]
     Active Substance: ETONOGESTREL
     Indication: CONTRACEPTION
     Dosage: UNK
     Route: 059
     Dates: start: 20130723, end: 20150507
  2. LAMICTAL [Concomitant]
     Active Substance: LAMOTRIGINE
  3. DILANTIN [Concomitant]
     Active Substance: PHENYTOIN

REACTIONS (2)
  - Expired product administered [Unknown]
  - Unintended pregnancy [Not Recovered/Not Resolved]

NARRATIVE: CASE EVENT DATE: 20141226
